FAERS Safety Report 21994511 (Version 1)
Quarter: 2023Q1

REPORT INFORMATION
  Report Type: Spontaneous
  Country: US (occurrence: US)
  Receive Date: 20230215
  Receipt Date: 20230215
  Transmission Date: 20230418
  Serious: Yes (Hospitalization, Other)
  Sender: FDA-Public Use
  Company Number: US-GLAXOSMITHKLINE-US2023023100

PATIENT

DRUGS (6)
  1. FLOVENT HFA [Suspect]
     Active Substance: FLUTICASONE PROPIONATE
     Indication: Asthma
     Dosage: UNK, BID
  2. ELIQUIS [Concomitant]
     Active Substance: APIXABAN
     Indication: Heart rate increased
     Dosage: UNK UNK, BID
  3. ENTRESTO [Concomitant]
     Active Substance: SACUBITRIL\VALSARTAN
     Indication: Cardiac valve disease
     Dosage: UNK, BID
     Dates: start: 20221023
  4. LEVOTHYROXINE [Concomitant]
     Active Substance: LEVOTHYROXINE
     Indication: Thyroid disorder
     Dosage: UNK UNK, QD
  5. AMIODARONE [Concomitant]
     Active Substance: AMIODARONE
     Indication: Heart valve replacement
     Dosage: UNK UNK, QD
  6. AMLODIPINE [Concomitant]
     Active Substance: AMLODIPINE BESYLATE
     Indication: Blood pressure measurement
     Dosage: 5 MG, QD

REACTIONS (2)
  - Heart valve incompetence [Recovered/Resolved]
  - Pulmonary oedema [Recovered/Resolved]
